FAERS Safety Report 4277209-3 (Version None)
Quarter: 2004Q1

REPORT INFORMATION
  Report Type: 
  Country: None (occurrence: None)
  Receive Date: 20040120
  Receipt Date: 20040109
  Transmission Date: 20041129
  Serious: Yes (Hospitalization)
  Sender: FDA-Public Use
  Company Number: NSADSS2002042650

PATIENT
  Age: 41 Year
  Sex: Male
  Weight: 72.8 kg

DRUGS (11)
  1. REMICADE [Suspect]
     Indication: RHEUMATOID ARTHRITIS
     Dosage: 207 MG, 1 IN 1 NECESSARY, INTRAVENOUS DRIP
     Route: 041
     Dates: start: 20020226, end: 20020226
  2. REMICADE [Suspect]
     Indication: RHEUMATOID ARTHRITIS
     Dosage: 207 MG, 1 IN 1 NECESSARY, INTRAVENOUS DRIP
     Route: 041
     Dates: start: 20021021, end: 20021021
  3. METHOTREXATE SODIUM [Concomitant]
  4. MVI (MULTIVITAMINS) [Concomitant]
  5. NAPROXEN [Concomitant]
  6. FOLIC ACID [Concomitant]
  7. PREDNISONE [Concomitant]
  8. CALCIUM CARBONATE (CALCIUM CARBONATE) [Concomitant]
  9. AMLODIPINE [Concomitant]
  10. FLU VACCINE (INFLUENZA VACCINE) [Concomitant]
  11. BENADRYL [Concomitant]

REACTIONS (12)
  - ABSCESS BACTERIAL [None]
  - BRAIN ABSCESS [None]
  - CEREBRAL ISCHAEMIA [None]
  - DIZZINESS [None]
  - ENCEPHALOMALACIA [None]
  - EYE PAIN [None]
  - HEADACHE [None]
  - INSOMNIA [None]
  - NAUSEA [None]
  - SINUSITIS [None]
  - VENOUS ANGIOMA OF BRAIN [None]
  - VOMITING [None]
